FAERS Safety Report 25215924 (Version 1)
Quarter: 2025Q2

REPORT INFORMATION
  Report Type: Report from Study
  Country: US (occurrence: US)
  Receive Date: 20250418
  Receipt Date: 20250418
  Transmission Date: 20250717
  Serious: Yes (Hospitalization, Other)
  Sender: ABBVIE
  Company Number: US-ABBVIE-6221867

PATIENT
  Age: 66 Year
  Sex: Female

DRUGS (3)
  1. RINVOQ [Suspect]
     Active Substance: UPADACITINIB
     Indication: Product used for unknown indication
     Route: 048
     Dates: start: 20230401
  2. RINVOQ [Suspect]
     Active Substance: UPADACITINIB
     Indication: Product used for unknown indication
     Route: 048
  3. RINVOQ [Suspect]
     Active Substance: UPADACITINIB
     Indication: Product used for unknown indication
     Route: 048
     Dates: start: 202503

REACTIONS (10)
  - Lung neoplasm malignant [Not Recovered/Not Resolved]
  - Concussion [Not Recovered/Not Resolved]
  - Skin disorder [Not Recovered/Not Resolved]
  - Fall [Recovered/Resolved]
  - Scab [Unknown]
  - Rash pruritic [Unknown]
  - Rash papular [Unknown]
  - Eczema [Unknown]
  - Scar [Not Recovered/Not Resolved]
  - Illness [Unknown]

NARRATIVE: CASE EVENT DATE: 20240101
